FAERS Safety Report 8611631-7 (Version None)
Quarter: 2012Q3

REPORT INFORMATION
  Report Type: 
  Country: None (occurrence: None)
  Receive Date: 20120809
  Receipt Date: 20120725
  Transmission Date: 20120928
  Serious: Yes (Death, Hospitalization, Other)
  Sender: FDA-Public Use
  Company Number: 2012MA009096

PATIENT
  Age: 15 Year
  Sex: Male

DRUGS (1)
  1. KADIAN [Suspect]
     Dosage: PO
     Route: 048

REACTIONS (8)
  - ABNORMAL BEHAVIOUR [None]
  - ENCEPHALOPATHY [None]
  - UNRESPONSIVE TO STIMULI [None]
  - MYOCLONUS [None]
  - HYPOTENSION [None]
  - CARDIO-RESPIRATORY ARREST [None]
  - CLONUS [None]
  - BRAIN OEDEMA [None]
